FAERS Safety Report 12819101 (Version 3)
Quarter: 2016Q4

REPORT INFORMATION
  Report Type: Spontaneous
  Country: US (occurrence: US)
  Receive Date: 20161006
  Receipt Date: 20161014
  Transmission Date: 20170207
  Serious: No
  Sender: FDA-Public Use
  Company Number: US-HORIZON-PEN-0473-2016

PATIENT
  Age: 43 Year
  Sex: Male

DRUGS (1)
  1. PENNSAID [Suspect]
     Active Substance: DICLOFENAC SODIUM
     Indication: ARTHRALGIA
     Dosage: 2-3 TIMES A DAY AS NEEDED
     Dates: start: 2016, end: 20160929

REACTIONS (6)
  - Application site infection [Recovering/Resolving]
  - Application site pain [Recovering/Resolving]
  - Application site rash [Recovering/Resolving]
  - Off label use [Unknown]
  - Application site scab [Recovering/Resolving]
  - Off label use [Unknown]

NARRATIVE: CASE EVENT DATE: 2016
